FAERS Safety Report 10734947 (Version 3)
Quarter: 2016Q2

REPORT INFORMATION
  Report Type: Report from Study
  Country: US (occurrence: US)
  Receive Date: 20150123
  Receipt Date: 20160408
  Transmission Date: 20160815
  Serious: Yes (Other)
  Sender: FDA-Public Use
  Company Number: US-ACTELION-A-US2015-111503

PATIENT
  Age: 66 Year
  Sex: Female

DRUGS (3)
  1. PREDNISONE. [Suspect]
     Active Substance: PREDNISONE
     Indication: PRODUCT USED FOR UNKNOWN INDICATION
     Route: 065
  2. SILDENAFIL. [Concomitant]
     Active Substance: SILDENAFIL
  3. TRACLEER [Suspect]
     Active Substance: BOSENTAN
     Indication: PULMONARY ARTERIAL HYPERTENSION
     Dosage: UNK
     Route: 048

REACTIONS (6)
  - Middle ear effusion [Unknown]
  - Myringotomy [Unknown]
  - Gastric disorder [Unknown]
  - Deafness unilateral [Unknown]
  - Visual acuity reduced [Unknown]
  - Ear operation [Unknown]
